FAERS Safety Report 16940709 (Version 1)
Quarter: 2019Q4

REPORT INFORMATION
  Report Type: Spontaneous
  Country: CN (occurrence: CN)
  Receive Date: 20191021
  Receipt Date: 20191021
  Transmission Date: 20200122
  Serious: Yes (Other)
  Sender: FDA-Public Use
  Company Number: CN-B.I. PHARMACEUTICALS,INC./RIDGEFIELD-2019-BI-108287

PATIENT
  Age: 65 Year
  Sex: Male

DRUGS (4)
  1. BUDESONIDE. [Suspect]
     Active Substance: BUDESONIDE
     Indication: PRODUCTIVE COUGH
     Dosage: FORM OF ADMIN: INHALATION
     Route: 055
     Dates: start: 20190920, end: 20190920
  2. ATROVENT [Suspect]
     Active Substance: IPRATROPIUM BROMIDE
     Indication: PRODUCTIVE COUGH
     Dosage: FORM OF ADMIN: INHALATION
     Route: 055
     Dates: start: 20190920, end: 20190920
  3. LEVOFLOXACIN LACTATE;SODIUM CHLORIDE [Concomitant]
     Indication: INFECTION
     Dosage: FORM OF ADMIN: INTRAVENOUS DRIP
     Route: 042
     Dates: start: 20190920, end: 20190925
  4. SALBUTAMOL SULFATE [Suspect]
     Active Substance: ALBUTEROL SULFATE
     Indication: PRODUCTIVE COUGH
     Route: 055
     Dates: start: 20190920, end: 20190920

REACTIONS (1)
  - Tremor [Recovering/Resolving]

NARRATIVE: CASE EVENT DATE: 20190920
